FAERS Safety Report 7435660-4 (Version None)
Quarter: 2011Q2

REPORT INFORMATION
  Report Type: 
  Country: None (occurrence: None)
  Receive Date: 20110425
  Receipt Date: 20110419
  Transmission Date: 20111010
  Serious: Yes (Other)
  Sender: FDA-Public Use
  Company Number: US-PFIZER INC-2009179913

PATIENT
  Sex: Female
  Weight: 63.5 kg

DRUGS (4)
  1. RELPAX [Suspect]
     Indication: MIGRAINE
     Dosage: 20 MG, AS NEEDED
     Route: 048
  2. XANAX [Concomitant]
     Indication: ANXIETY DISORDER
     Dosage: 0.25 MG, AS NEEDED
     Route: 048
  3. IMITREX [Suspect]
     Dosage: UNK
  4. ACETYLSALICYLIC ACID [Concomitant]
     Indication: HEADACHE
     Dosage: 325 MG, AS NEEDED
     Route: 048

REACTIONS (4)
  - LUNG DISORDER [None]
  - NAUSEA [None]
  - DRUG INEFFECTIVE [None]
  - PULMONARY MYCOSIS [None]
